FAERS Safety Report 6712690-9 (Version None)
Quarter: 2010Q2

REPORT INFORMATION
  Report Type: 
  Country: None (occurrence: None)
  Receive Date: 20100505
  Receipt Date: 20100505
  Transmission Date: 20101027
  Serious: No
  Sender: FDA-Public Use
  Company Number: None

PATIENT
  Age: 82 Year
  Sex: Male
  Weight: 74.8435 kg

DRUGS (1)
  1. EXELON [Suspect]
     Indication: DRUG THERAPY
     Dosage: ONCE DAILY DAILY
     Dates: start: 20100326, end: 20100409

REACTIONS (4)
  - ASTHENIA [None]
  - DECREASED APPETITE [None]
  - LETHARGY [None]
  - MALAISE [None]
